FAERS Safety Report 6642884-2 (Version None)
Quarter: 2010Q1

REPORT INFORMATION
  Report Type: 
  Country: None (occurrence: None)
  Receive Date: 20100319
  Receipt Date: 20100305
  Transmission Date: 20100710
  Serious: Yes (Other)
  Sender: FDA-Public Use
  Company Number: US-ELI_LILLY_AND_COMPANY-US201003003020

PATIENT
  Sex: Female

DRUGS (2)
  1. FORTEO [Suspect]
     Indication: OSTEOPOROSIS
     Dosage: 20 UG, DAILY (1/D)
     Dates: start: 20060101
  2. NEXIUM [Concomitant]

REACTIONS (6)
  - EYE HAEMORRHAGE [None]
  - FALL [None]
  - ROTATOR CUFF SYNDROME [None]
  - SCAR [None]
  - THROMBOSIS [None]
  - VISUAL IMPAIRMENT [None]
